FAERS Safety Report 20959392 (Version 1)
Quarter: 2022Q2

REPORT INFORMATION
  Report Type: Spontaneous
  Country: US (occurrence: US)
  Receive Date: 20220614
  Receipt Date: 20220614
  Transmission Date: 20220721
  Serious: No
  Sender: FDA-Public Use
  Company Number: US-MYLANLABS-2022M1038692

PATIENT
  Sex: Female
  Weight: 77.11 kg

DRUGS (1)
  1. XULANE [Suspect]
     Active Substance: ETHINYL ESTRADIOL\NORELGESTROMIN
     Indication: Contraception
     Dosage: 150/35MCG, QD
     Route: 062

REACTIONS (2)
  - Contraindicated product administered [Unknown]
  - Product adhesion issue [Unknown]
